FAERS Safety Report 26186361 (Version 1)
Quarter: 2025Q4

REPORT INFORMATION
  Report Type: Spontaneous
  Country: US (occurrence: None)
  Receive Date: 20251222
  Receipt Date: 20251222
  Transmission Date: 20260118
  Serious: Yes (Hospitalization)
  Sender: FDA-CTU
  Company Number: None

PATIENT
  Age: 49 Year
  Sex: Female
  Weight: 105.75 kg

DRUGS (5)
  1. ZEPBOUND [Suspect]
     Active Substance: TIRZEPATIDE
     Indication: Weight decreased
     Route: 058
     Dates: start: 20251215, end: 20251215
  2. PROGESTERONE [Concomitant]
     Active Substance: PROGESTERONE
  3. LEVOTHYROXINE [Concomitant]
     Active Substance: LEVOTHYROXINE
  4. LIOTHYRONINE [Concomitant]
     Active Substance: LIOTHYRONINE
  5. NALTREXONE [Concomitant]
     Active Substance: NALTREXONE

REACTIONS (2)
  - Anaphylactic reaction [None]
  - Injection related reaction [None]

NARRATIVE: CASE EVENT DATE: 20251215
